FAERS Safety Report 20333837 (Version 1)
Quarter: 2022Q1

REPORT INFORMATION
  Report Type: Spontaneous
  Country: SE (occurrence: SE)
  Receive Date: 20220113
  Receipt Date: 20220113
  Transmission Date: 20220423
  Serious: Yes (Hospitalization)
  Sender: FDA-Public Use
  Company Number: None

PATIENT
  Age: 76 Year
  Sex: Male
  Weight: 91 kg

DRUGS (8)
  1. VEKLURY [Suspect]
     Active Substance: REMDESIVIR
     Indication: COVID-19
     Dosage: 100 MG, QD
     Route: 042
     Dates: start: 20211203, end: 20211205
  2. VEKLURY [Suspect]
     Active Substance: REMDESIVIR
     Dosage: 200 MG, QD
     Route: 042
     Dates: start: 20211202, end: 20211202
  3. ALBUTEROL SULFATE [Concomitant]
     Active Substance: ALBUTEROL SULFATE
     Dosage: 0,2 MG/DOS 1-2 VB
     Route: 055
     Dates: start: 20210107
  4. ANORO ELLIPTA [Concomitant]
     Active Substance: UMECLIDINIUM BROMIDE\VILANTEROL TRIFENATATE
     Dosage: 55 MIKROGRAM/22 MIKROGRAM 1X2
     Route: 055
     Dates: start: 20200306
  5. FRAGMIN [Concomitant]
     Active Substance: DALTEPARIN SODIUM
     Dosage: 7500 IE 1X1
     Route: 058
     Dates: start: 20211202
  6. OVIXAN [Concomitant]
     Dosage: 1 MG/G ENLIGT ORDINATION
     Route: 003
     Dates: start: 20190212
  7. IPRATROPIUM/SALBUTAMOL ORION [Concomitant]
     Dosage: 0,5 MG/2,5 MG PER 2,5 ML 2,5MLX3-4 VB
     Route: 055
     Dates: start: 20211202
  8. FINASTERID SANDOZ [Concomitant]
     Dosage: 5 MG 1X1
     Route: 048
     Dates: start: 20190212

REACTIONS (1)
  - Bradycardia [Recovered/Resolved]

NARRATIVE: CASE EVENT DATE: 20211206
